FAERS Safety Report 6076279-X (Version None)
Quarter: 2009Q1

REPORT INFORMATION
  Report Type: 
  Country: None (occurrence: None)
  Receive Date: 20090209
  Receipt Date: 20090127
  Transmission Date: 20090719
  Serious: Yes (Hospitalization)
  Sender: FDA-Public Use
  Company Number: 230041K09BRA

PATIENT
  Age: 42 Year
  Sex: Female

DRUGS (4)
  1. REBIF [Suspect]
     Dosage: 22 MCG, 3 IN 1 WEEKS
     Route: 058
     Dates: start: 20040615, end: 20050916
  2. ENALAPRIL MALEATE [Concomitant]
  3. FLUOXETINE (FLUOXETINE /00724401/) [Concomitant]
  4. BROMAZEPAM (BROMAZEPAM) [Concomitant]

REACTIONS (2)
  - ACCIDENT [None]
  - FEMUR FRACTURE [None]
